FAERS Safety Report 10765743 (Version 1)
Quarter: 2015Q1

REPORT INFORMATION
  Report Type: Spontaneous
  Country: US (occurrence: None)
  Receive Date: 20150204
  Receipt Date: 20150204
  Transmission Date: 20150721
  Serious: No
  Sender: FDA-Public Use
  Company Number: None

PATIENT
  Age: 20 Year
  Sex: Female
  Weight: 61.69 kg

DRUGS (1)
  1. XULANE [Suspect]
     Active Substance: ETHINYL ESTRADIOL\NORELGESTROMIN
     Indication: CONTRACEPTION
     Dosage: 1 PATCH WEEKLY APPLIED AS MEDICATED PATCH TO SKIN
     Route: 061

REACTIONS (2)
  - Product substitution issue [None]
  - Product adhesion issue [None]

NARRATIVE: CASE EVENT DATE: 20150203
